FAERS Safety Report 16524961 (Version 2)
Quarter: 2019Q3

REPORT INFORMATION
  Report Type: Spontaneous
  Country: DE (occurrence: DE)
  Receive Date: 20190703
  Receipt Date: 20190802
  Transmission Date: 20191004
  Serious: Yes (Other)
  Sender: FDA-Public Use
  Company Number: DE-UCBSA-2019028104

PATIENT

DRUGS (1)
  1. LEVETIRACETAM. [Suspect]
     Active Substance: LEVETIRACETAM
     Indication: DRUG THERAPY
     Dosage: 375 MILLIGRAM/KILOGRAM (2000 MILLIGRAM)
     Route: 048

REACTIONS (3)
  - Coma [Unknown]
  - Toxicity to various agents [Unknown]
  - Overdose [Unknown]
